FAERS Safety Report 4539838-9 (Version None)
Quarter: 2004Q4

REPORT INFORMATION
  Report Type: 
  Country: None (occurrence: None)
  Receive Date: 20041222
  Receipt Date: 20041201
  Transmission Date: 20050328
  Serious: Yes (Other)
  Sender: FDA-Public Use
  Company Number: USA041285011

PATIENT
  Age: 56 Year
  Sex: Female

DRUGS (6)
  1. PROZAC [Suspect]
     Indication: BODY DYSMORPHIC DISORDER
     Dosage: 80 MG
     Dates: start: 19940101
  2. KLONOPIN [Concomitant]
  3. ZYRTEC [Concomitant]
  4. SYNTHROID [Concomitant]
  5. OSCAL (CALCIUM CARBONATE) [Concomitant]
  6. MULTIVITAMIN [Concomitant]

REACTIONS (4)
  - HEPATIC CIRRHOSIS [None]
  - HEPATITIS [None]
  - INSOMNIA [None]
  - NERVOUSNESS [None]
